FAERS Safety Report 4585144-6 (Version None)
Quarter: 2005Q1

REPORT INFORMATION
  Report Type: 
  Country: None (occurrence: None)
  Receive Date: 20050217
  Receipt Date: 20050111
  Transmission Date: 20050727
  Serious: No
  Sender: FDA-Public Use
  Company Number: US-GLAXOSMITHKLINE-A0540237A

PATIENT
  Age: 55 Year
  Sex: Male

DRUGS (2)
  1. WELLBUTRIN XL [Suspect]
     Indication: DEPRESSION
     Dosage: 150MG PER DAY
     Route: 048
     Dates: start: 20050109
  2. TYLENOL [Concomitant]

REACTIONS (3)
  - CRYING [None]
  - FATIGUE [None]
  - MIDDLE INSOMNIA [None]
